FAERS Safety Report 4818037-7 (Version None)
Quarter: 2005Q4

REPORT INFORMATION
  Report Type: 
  Country: None (occurrence: None)
  Receive Date: 20051102
  Receipt Date: 20051018
  Transmission Date: 20060501
  Serious: Yes (Hospitalization)
  Sender: FDA-Public Use
  Company Number: US-AMGEN-US154798

PATIENT
  Sex: Female

DRUGS (3)
  1. ENBREL [Suspect]
     Indication: JUVENILE ARTHRITIS
     Dates: start: 20050314, end: 20051001
  2. METHOTREXATE [Concomitant]
     Route: 058
  3. FOLIC ACID [Concomitant]

REACTIONS (3)
  - HISTOPLASMOSIS [None]
  - PHARYNGOLARYNGEAL PAIN [None]
  - PYREXIA [None]
